FAERS Safety Report 12449090 (Version 2)
Quarter: 2016Q2

REPORT INFORMATION
  Report Type: Spontaneous
  Country: US (occurrence: US)
  Receive Date: 20160608
  Receipt Date: 20160622
  Transmission Date: 20160815
  Serious: Yes (Death, Hospitalization, Other)
  Sender: FDA-Public Use
  Company Number: US-JNJFOC-20160505522

PATIENT
  Age: 88 Year
  Sex: Female
  Weight: 44 kg

DRUGS (5)
  1. GAMMAPLEX [Concomitant]
     Active Substance: HUMAN IMMUNOGLOBULIN G
  2. DARZALEX [Suspect]
     Active Substance: DARATUMUMAB
     Indication: PLASMA CELL MYELOMA
     Dosage: 645 MG OR 654 MG
     Route: 042
     Dates: start: 20160420, end: 20160427
  3. FAMCICLOVIR. [Concomitant]
     Active Substance: FAMCICLOVIR
  4. DARBEPOETIN ALFA [Concomitant]
     Active Substance: DARBEPOETIN ALFA
  5. PREDNISONE. [Concomitant]
     Active Substance: PREDNISONE

REACTIONS (4)
  - Death [Fatal]
  - Anaemia [Unknown]
  - Crossmatch incompatible [Unknown]
  - Drug dose omission [Unknown]

NARRATIVE: CASE EVENT DATE: 20160502
